FAERS Safety Report 6422892-7 (Version None)
Quarter: 2009Q4

REPORT INFORMATION
  Report Type: 
  Country: None (occurrence: None)
  Receive Date: 20091102
  Receipt Date: 20091026
  Transmission Date: 20100525
  Serious: Yes (Death, Hospitalization, Other)
  Sender: FDA-Public Use
  Company Number: GR-ROCHE-664603

PATIENT
  Age: 44 Year
  Sex: Male

DRUGS (13)
  1. MYCOPHENOLATE MOFETIL [Suspect]
     Route: 065
  2. COTRIM [Suspect]
     Indication: INFECTION PROPHYLAXIS
     Dosage: TRIMETHOPRIM: 20 MG/KG AND SULFAMETHOXAZOLE: 100 MG/KG DAILY
     Route: 065
  3. COTRIM [Suspect]
     Route: 065
  4. CEFTRIAXONE [Suspect]
     Indication: INFECTION PROPHYLAXIS
     Route: 065
  5. GANCICLOVIR [Suspect]
     Indication: INFECTION PROPHYLAXIS
     Route: 065
  6. ANTILYMPHOCYTE GLOBULIN [Suspect]
     Route: 065
  7. CYCLOSPORINE [Suspect]
     Route: 065
  8. PREDNISOLONE [Suspect]
     Route: 065
  9. PREDNISOLONE [Suspect]
     Dosage: REDUCED DOSE
     Route: 065
  10. HYDROCORTISONE [Suspect]
     Indication: INFECTION PROPHYLAXIS
     Route: 065
  11. HYDROCORTISONE [Suspect]
     Dosage: REDUCED DOSE
     Route: 065
  12. ERYTHROMYCIN [Suspect]
     Indication: INFECTION PROPHYLAXIS
     Route: 065
  13. PENTAMIDINE ISETHIONATE [Suspect]
     Indication: DRUG USE FOR UNKNOWN INDICATION
     Route: 042

REACTIONS (5)
  - PNEUMOCYSTIS JIROVECI PNEUMONIA [None]
  - PNEUMOTHORAX [None]
  - PULMONARY HAEMORRHAGE [None]
  - THERAPEUTIC PRODUCT INEFFECTIVE [None]
  - TORSADE DE POINTES [None]
